FAERS Safety Report 17914753 (Version 1)
Quarter: 2020Q2

REPORT INFORMATION
  Report Type: Spontaneous
  Country: JP (occurrence: JP)
  Receive Date: 20200618
  Receipt Date: 20200618
  Transmission Date: 20200714
  Serious: Yes (Death)
  Sender: FDA-Public Use
  Company Number: JP-SYNEX-T202002728

PATIENT
  Age: 2 Year
  Sex: Male
  Weight: 3 kg

DRUGS (2)
  1. INOFLO [Suspect]
     Active Substance: NITRIC OXIDE
     Indication: CHRONIC RESPIRATORY DISEASE
     Dosage: UNK (INHALATION)
     Route: 055
  2. INOFLO [Suspect]
     Active Substance: NITRIC OXIDE
     Indication: PULMONARY HYPERTENSION
     Dosage: UNK (INHALATION)
     Route: 055

REACTIONS (2)
  - Pulmonary hypoplasia [Fatal]
  - Product use issue [Unknown]
